FAERS Safety Report 4293841-5 (Version None)
Quarter: 2004Q1

REPORT INFORMATION
  Report Type: 
  Country: None (occurrence: None)
  Receive Date: 20040212
  Receipt Date: 20040205
  Transmission Date: 20041129
  Serious: Yes (Hospitalization)
  Sender: FDA-Public Use
  Company Number: ES-BRISTOL-MYERS SQUIBB COMPANY-12497889

PATIENT
  Age: 59 Year
  Sex: Female

DRUGS (2)
  1. IRBESARTAN [Suspect]
     Dates: end: 20030301
  2. FUROSEMIDE [Suspect]

REACTIONS (8)
  - ANTINUCLEAR ANTIBODY POSITIVE [None]
  - ASTHENIA [None]
  - CHOLELITHIASIS [None]
  - DRUG TOXICITY [None]
  - DYSPEPSIA [None]
  - HEPATITIS ACUTE [None]
  - HEPATOMEGALY [None]
  - RENAL IMPAIRMENT [None]
